FAERS Safety Report 9357610 (Version 1)
Quarter: 2013Q2

REPORT INFORMATION
  Report Type: Spontaneous
  Country: KR (occurrence: KR)
  Receive Date: 20130620
  Receipt Date: 20130620
  Transmission Date: 20140414
  Serious: Yes (Death, Other)
  Sender: FDA-Public Use
  Company Number: KR-JNJFOC-20130608515

PATIENT
  Sex: 0

DRUGS (1)
  1. TOPIRAMATE [Suspect]
     Indication: EPILEPSY
     Dosage: MEAN DOSAGES : 4.9+/- 2.5 MG/KG/DAY
     Route: 048

REACTIONS (7)
  - Malaise [Fatal]
  - Psychomotor retardation [Unknown]
  - Treatment noncompliance [Unknown]
  - Drug ineffective [Unknown]
  - Hypophagia [Unknown]
  - Somnolence [Unknown]
  - Off label use [Unknown]
